FAERS Safety Report 8125933-4 (Version None)
Quarter: 2012Q1

REPORT INFORMATION
  Report Type: 
  Country: None (occurrence: None)
  Receive Date: 20120209
  Receipt Date: 20120207
  Transmission Date: 20120608
  Serious: Yes (Other)
  Sender: FDA-Public Use
  Company Number: US-ROCHE-792798

PATIENT
  Sex: Male
  Weight: 70.37 kg

DRUGS (3)
  1. ACCUTANE [Suspect]
     Indication: ACNE CYSTIC
     Route: 048
     Dates: start: 19981201, end: 20000531
  2. ACCUTANE [Suspect]
     Route: 048
     Dates: start: 20010101, end: 20020101
  3. ACCUTANE [Suspect]
     Route: 048
     Dates: start: 19960101, end: 19980101

REACTIONS (8)
  - ATTENTION DEFICIT/HYPERACTIVITY DISORDER [None]
  - LIP DRY [None]
  - INFLAMMATORY BOWEL DISEASE [None]
  - DRY SKIN [None]
  - DEPRESSION [None]
  - MENTAL DISORDER [None]
  - RHEUMATOID ARTHRITIS [None]
  - IRRITABLE BOWEL SYNDROME [None]
